FAERS Safety Report 7047121-5 (Version None)
Quarter: 2010Q4

REPORT INFORMATION
  Report Type: 
  Country: None (occurrence: None)
  Receive Date: 20101012
  Receipt Date: 20100927
  Transmission Date: 20110411
  Serious: Yes (Hospitalization, Other)
  Sender: FDA-Public Use
  Company Number: 2010JP005207

PATIENT
  Age: 73 Year
  Sex: Male
  Weight: 70 kg

DRUGS (6)
  1. VESICARE [Suspect]
     Indication: BENIGN PROSTATIC HYPERPLASIA
     Dosage: 5 MG, UID/QD, ORAL
     Route: 048
     Dates: start: 20100812, end: 20100816
  2. VESICARE [Suspect]
     Indication: HYPERTONIC BLADDER
     Dosage: 5 MG, UID/QD, ORAL
     Route: 048
     Dates: start: 20100812, end: 20100816
  3. FLIVAS (NAFTOPIDIL) PER ORAL NOS [Suspect]
     Indication: BENIGN PROSTATIC HYPERPLASIA
     Dosage: 50 MG, UID/QD, ORAL
     Route: 048
     Dates: start: 20100812, end: 20100816
  4. FLIVAS (NAFTOPIDIL) PER ORAL NOS [Suspect]
     Indication: HYPERTONIC BLADDER
     Dosage: 50 MG, UID/QD, ORAL
     Route: 048
     Dates: start: 20100812, end: 20100816
  5. DEPAKENE [Concomitant]
  6. ALEVITIN (PHENYTOIN) [Concomitant]

REACTIONS (9)
  - ALANINE AMINOTRANSFERASE INCREASED [None]
  - ASPARTATE AMINOTRANSFERASE INCREASED [None]
  - BLOOD AMYLASE INCREASED [None]
  - CHOLECYSTITIS [None]
  - GALLBLADDER DISORDER [None]
  - HEPATIC FUNCTION ABNORMAL [None]
  - LIPASE INCREASED [None]
  - MUSCULAR WEAKNESS [None]
  - PYREXIA [None]
